FAERS Safety Report 6251959-1 (Version None)
Quarter: 2009Q2

REPORT INFORMATION
  Report Type: 
  Country: None (occurrence: None)
  Receive Date: 20090629
  Receipt Date: 20090618
  Transmission Date: 20091009
  Serious: Yes (Death)
  Sender: FDA-Public Use
  Company Number: 303271

PATIENT
  Age: 51 Year
  Sex: Male
  Weight: 90 kg

DRUGS (8)
  1. VANCOMYCIN HCL [Suspect]
     Indication: PNEUMONIA
     Dosage: INTRAVENOUS
     Route: 042
     Dates: start: 20080206, end: 20080219
  2. HEPARIN [Concomitant]
  3. (TRAMADOL) [Concomitant]
  4. OMEPRAZOLE [Concomitant]
  5. CEFEPIME [Concomitant]
  6. NIFEDIPINE [Concomitant]
  7. CAPTOPRIL [Concomitant]
  8. (TAZOCIN) [Concomitant]

REACTIONS (3)
  - CARDIAC ARREST [None]
  - MULTI-ORGAN FAILURE [None]
  - RENAL FAILURE ACUTE [None]
